FAERS Safety Report 8802452 (Version 1)
Quarter: 2012Q4

REPORT INFORMATION
  Report Type: 
  Country: UG (occurrence: UG)
  Receive Date: 20120921
  Receipt Date: 20120921
  Transmission Date: 20130627
  Serious: Yes (Death)
  Sender: FDA-Public Use
  Company Number: PHHY2009UG071127

PATIENT
  Sex: Male

DRUGS (1)
  1. GLIVEC [Suspect]
     Dosage: UNK
     Dates: start: 20060904

REACTIONS (4)
  - Neoplasm progression [Fatal]
  - Malignant neoplasm progression [Fatal]
  - Drug resistance [Fatal]
  - Chronic myeloid leukaemia [None]
